FAERS Safety Report 5382929-3 (Version None)
Quarter: 2007Q3

REPORT INFORMATION
  Report Type: 
  Country: None (occurrence: None)
  Receive Date: 20070705
  Receipt Date: 20070705
  Transmission Date: 20080115
  Serious: No
  Sender: FDA-Public Use
  Company Number: None

PATIENT
  Age: 52 Year
  Sex: Female
  Weight: 65.7716 kg

DRUGS (2)
  1. BONIVA [Suspect]
     Indication: OSTEOPOROSIS
     Dosage: 1 ONCE A MONTH PO
     Route: 048
     Dates: start: 20070701, end: 20070701
  2. BONIVA [Suspect]
     Indication: RESORPTION BONE INCREASED
     Dosage: 1 ONCE A MONTH PO
     Route: 048
     Dates: start: 20070701, end: 20070701

REACTIONS (6)
  - ARTHRALGIA [None]
  - ASTHENIA [None]
  - DEPRESSION [None]
  - FEELING ABNORMAL [None]
  - MUSCULOSKELETAL PAIN [None]
  - NECK PAIN [None]
